FAERS Safety Report 14353965 (Version 1)
Quarter: 2018Q1

REPORT INFORMATION
  Report Type: Report from Study
  Country: US (occurrence: US)
  Receive Date: 20180105
  Receipt Date: 20180105
  Transmission Date: 20180509
  Serious: Yes (Hospitalization, Other)
  Sender: FDA-Public Use
  Company Number: US-UNITED THERAPEUTICS-UNT-2017-016697

PATIENT
  Age: 83 Year
  Sex: Female
  Weight: 44.81 kg

DRUGS (16)
  1. ATORVASTATIN [Concomitant]
     Active Substance: ATORVASTATIN
     Indication: BLOOD CHOLESTEROL INCREASED
     Dosage: 40 MG, TOTAL DAILY DOSE
     Route: 065
     Dates: start: 20161109
  2. LIDOCAINE. [Concomitant]
     Active Substance: LIDOCAINE
     Indication: LOCAL ANAESTHESIA
     Dosage: 2.5 %, TOTAL DAILY DOSE
     Route: 065
     Dates: start: 20171114
  3. PROSTAT                            /00093602/ [Concomitant]
     Indication: NUTRITIONAL SUPPLEMENTATION
     Dosage: UNK
     Route: 065
     Dates: start: 20161109
  4. COMPAZINE                          /00013302/ [Concomitant]
     Active Substance: PROCHLORPERAZINE EDISYLATE
     Indication: ANXIETY
     Dosage: 10 MG, TOTAL DAILY DOSE
     Route: 065
     Dates: start: 20171114
  5. ATROPINE. [Concomitant]
     Active Substance: ATROPINE
     Indication: HYPERTENSION
     Dosage: 0.4 MG, TOTAL DAILY DOSE
     Route: 065
     Dates: start: 20171114, end: 20171114
  6. ASPIRIN                            /00002701/ [Concomitant]
     Active Substance: ASPIRIN
     Indication: PYREXIA
  7. ACETAMINOPHEN. [Concomitant]
     Active Substance: ACETAMINOPHEN
     Indication: PAIN
     Dosage: 325 MG, TOTAL DAILY DOSE
     Route: 065
     Dates: start: 20161109
  8. ASPIRIN                            /00002701/ [Concomitant]
     Active Substance: ASPIRIN
     Indication: PAIN
     Dosage: 81 MG, TOTAL DAILY DOSE
     Route: 065
     Dates: start: 20161109
  9. MULTIVITAMIN                       /00097801/ [Concomitant]
     Active Substance: VITAMINS
     Indication: NUTRITIONAL SUPPLEMENTATION
     Dosage: UNK
     Route: 065
     Dates: start: 20161109
  10. DEXAMETHASONE. [Concomitant]
     Active Substance: DEXAMETHASONE
     Indication: PREMEDICATION
     Dosage: 10 MG, TOTAL DAILY DOSE
     Route: 065
     Dates: start: 20171114, end: 20171114
  11. ALOXI [Concomitant]
     Active Substance: PALONOSETRON HYDROCHLORIDE
     Indication: PREMEDICATION
     Dosage: 0.25 MG, TOTAL DAILY DOSE
     Route: 065
     Dates: start: 20171114, end: 20171114
  12. ENOXAPARIN [Concomitant]
     Active Substance: ENOXAPARIN
     Indication: THROMBOSIS PROPHYLAXIS
     Dosage: 40 MG, TOTAL DAILY DOSE
     Route: 065
     Dates: start: 20161109
  13. AMLODIPINE [Concomitant]
     Active Substance: AMLODIPINE BESYLATE
     Indication: HYPERTENSION
     Dosage: 0.5 MG, TOTAL DAILY DOSE
     Route: 065
     Dates: start: 20161109
  14. ACETAMINOPHEN. [Concomitant]
     Active Substance: ACETAMINOPHEN
     Indication: PYREXIA
  15. NEULASTA [Concomitant]
     Active Substance: PEGFILGRASTIM
     Indication: IMMUNE SYSTEM DISORDER
     Dosage: 6 MG, TOTAL DAILY DOSE
     Route: 065
     Dates: start: 20171114, end: 20171114
  16. IRINOTECAN [Suspect]
     Active Substance: IRINOTECAN
     Indication: SMALL CELL LUNG CANCER
     Dosage: 350 MG/M2, TOTAL DAILY DOSE, CYCLE 1
     Route: 041
     Dates: start: 20171114, end: 20171114

REACTIONS (3)
  - Pancytopenia [Recovered/Resolved]
  - Clostridium difficile colitis [Recovered/Resolved]
  - Oesophagitis [Recovered/Resolved]

NARRATIVE: CASE EVENT DATE: 20171121
